FAERS Safety Report 20252854 (Version 1)
Quarter: 2021Q4

REPORT INFORMATION
  Report Type: Spontaneous
  Country: US (occurrence: US)
  Receive Date: 20211229
  Receipt Date: 20211229
  Transmission Date: 20220303
  Serious: Yes (Death, Other)
  Sender: FDA-Public Use
  Company Number: US-PURDUE-USA-2020-0225545

PATIENT
  Sex: Male

DRUGS (14)
  1. OXYCONTIN [Suspect]
     Active Substance: OXYCODONE HYDROCHLORIDE
     Indication: Back injury
     Dosage: UNKNOWN
     Route: 048
  2. OXYCODONE HYDROCHLORIDE [Suspect]
     Active Substance: OXYCODONE HYDROCHLORIDE
     Indication: Back injury
     Dosage: UNKNOWN
     Route: 065
  3. OXYCODONE HYDROCHLORIDE [Suspect]
     Active Substance: OXYCODONE HYDROCHLORIDE
     Indication: Back injury
     Dosage: UNKNOWN
     Route: 048
  4. ACETAMINOPHEN\OXYCODONE HYDROCHLORIDE [Suspect]
     Active Substance: ACETAMINOPHEN\OXYCODONE HYDROCHLORIDE
     Indication: Back injury
     Dosage: UNKNOWN
     Route: 048
  5. BUTRANS [Suspect]
     Active Substance: BUPRENORPHINE
     Indication: Back injury
     Dosage: UNKNOWN
     Route: 062
  6. DILAUDID [Suspect]
     Active Substance: HYDROMORPHONE HYDROCHLORIDE
     Indication: Back injury
     Dosage: UNKNOWN
     Route: 048
  7. MS CONTIN [Suspect]
     Active Substance: MORPHINE SULFATE
     Indication: Back injury
     Dosage: UNKNOWN
     Route: 048
  8. BUPRENORPHINE [Suspect]
     Active Substance: BUPRENORPHINE
     Indication: Back injury
     Dosage: UNKNOWN
     Route: 062
  9. HYDROMORPHONE [Suspect]
     Active Substance: HYDROMORPHONE
     Indication: Back injury
     Dosage: UNKNOWN
     Route: 048
  10. MORPHINE SULFATE [Suspect]
     Active Substance: MORPHINE SULFATE
     Indication: Back injury
     Dosage: UNKNOWN
     Route: 048
  11. RYZOLT [Suspect]
     Active Substance: TRAMADOL HYDROCHLORIDE
     Indication: Back injury
     Dosage: UNKNOWN
     Route: 048
  12. HYDROCODONE BITARTRATE [Suspect]
     Active Substance: HYDROCODONE BITARTRATE
     Indication: Back injury
     Dosage: UNKNOWN
     Route: 065
  13. OXYCODONE HYDROCHLORIDE [Suspect]
     Active Substance: OXYCODONE HYDROCHLORIDE
     Indication: Back injury
     Dosage: UNKNOWN
     Route: 065
  14. COCAINE [Suspect]
     Active Substance: COCAINE
     Indication: Back injury
     Dosage: UNKNOWN
     Route: 065

REACTIONS (3)
  - Toxicity to various agents [Fatal]
  - Overdose [Unknown]
  - Drug dependence [Unknown]

NARRATIVE: CASE EVENT DATE: 20140427
